FAERS Safety Report 12419951 (Version 1)
Quarter: 2016Q2

REPORT INFORMATION
  Report Type: Spontaneous
  Country: FR (occurrence: FR)
  Receive Date: 20160531
  Receipt Date: 20160531
  Transmission Date: 20160815
  Serious: Yes (Other)
  Sender: FDA-Public Use
  Company Number: FR-PFIZER INC-2016277516

PATIENT
  Age: 63 Year
  Sex: Female

DRUGS (21)
  1. SMECTA /07327601/ [Concomitant]
     Dosage: 3 G, UNK
     Route: 048
  2. ELUDRIL /02860401/ [Concomitant]
     Route: 002
  3. GAVISCON /01405501/ [Concomitant]
     Active Substance: SODIUM ALGINATE\SODIUM BICARBONATE
     Route: 048
  4. MIKICORT [Concomitant]
     Active Substance: BUDESONIDE
     Dosage: STRENGTH 3 MG, ENTERIC-COATED CAPSULE
     Route: 048
  5. SANDIMMUNE [Suspect]
     Active Substance: CYCLOSPORINE
     Dosage: 20 MG, DAILY
     Route: 041
     Dates: start: 20160419, end: 20160420
  6. TIORFAN [Concomitant]
     Active Substance: RACECADOTRIL
     Dosage: 100 MG, UNK
     Route: 048
  7. REFRESH [Concomitant]
     Active Substance: UNSPECIFIED INGREDIENT
     Dosage: EYE DROPS IN SINGLE-USE VIAL
     Route: 047
  8. SOLU-MEDROL [Suspect]
     Active Substance: METHYLPREDNISOLONE SODIUM SUCCINATE
     Indication: ACUTE GRAFT VERSUS HOST DISEASE
     Dosage: 120 MG, DAILY
     Route: 041
     Dates: start: 20160403, end: 20160418
  9. LOXEN /00639802/ [Suspect]
     Active Substance: NICARDIPINE
     Indication: HYPERTENSION
     Dosage: STRENGTH 5 MG/5 ML
     Route: 042
     Dates: start: 20160401, end: 20160413
  10. WELLVONE [Concomitant]
     Active Substance: ATOVAQUONE
     Dosage: 750 MG/5 ML
     Route: 048
  11. SOLU-MEDROL [Suspect]
     Active Substance: METHYLPREDNISOLONE SODIUM SUCCINATE
     Dosage: 80 MG, DAILY
     Route: 041
     Dates: start: 20160419
  12. CYMEVAN [Suspect]
     Active Substance: GANCICLOVIR
     Indication: CYTOMEGALOVIRUS INFECTION
     Dosage: 260 MG, 2X/DAY
     Route: 041
     Dates: start: 20160401, end: 20160430
  13. CLAMOXYL /00249601/ [Concomitant]
     Active Substance: AMOXICILLIN
     Dosage: 500 MG, UNK
     Route: 048
  14. LEVOTHYROX [Concomitant]
     Active Substance: LEVOTHYROXINE
     Dosage: 50 UG, UNK
     Route: 048
  15. CHOLURSO [Concomitant]
     Active Substance: URSODIOL
     Dosage: 250 MG, UNK
     Route: 048
  16. FUNGIZONE [Concomitant]
     Active Substance: AMPHOTERICIN B
     Dosage: 250 MG, UNK
     Route: 048
  17. LOXEN /00639802/ [Suspect]
     Active Substance: NICARDIPINE
     Indication: HYPERTENSION
     Dosage: 50 MG, 2X/DAY
     Route: 048
     Dates: start: 20160414, end: 20160428
  18. SANDIMMUNE [Suspect]
     Active Substance: CYCLOSPORINE
     Indication: PROPHYLAXIS AGAINST TRANSPLANT REJECTION
     Dosage: 15 MG, 2X/DAY
     Route: 041
     Dates: start: 20160306, end: 20160418
  19. VFEND [Concomitant]
     Active Substance: VORICONAZOLE
     Route: 048
  20. VITABACT [Concomitant]
     Active Substance: PICLOXYDINE DIHYDROCHLORIDE
     Dosage: 0.173 MG/0.4 ML, EYE DROPS IN SINGLE-DOSE VIAL
     Route: 047
  21. CELLCEPT [Concomitant]
     Active Substance: MYCOPHENOLATE MOFETIL\MYCOPHENOLATE MOFETIL HYDROCHLORIDE
     Indication: PROPHYLAXIS AGAINST TRANSPLANT REJECTION
     Dosage: UNK
     Dates: start: 20160306

REACTIONS (2)
  - Thrombotic microangiopathy [Unknown]
  - Fall [Recovered/Resolved]

NARRATIVE: CASE EVENT DATE: 20160419
